FAERS Safety Report 6144782-X (Version None)
Quarter: 2009Q2

REPORT INFORMATION
  Report Type: 
  Country: None (occurrence: None)
  Receive Date: 20090406
  Receipt Date: 20090327
  Transmission Date: 20091009
  Serious: Yes (Disabling)
  Sender: FDA-Public Use
  Company Number: JP-ABBOTT-09P-087-0501982-00

PATIENT
  Age: 48 Year
  Sex: Male

DRUGS (11)
  1. KALETRA [Suspect]
     Indication: HIV INFECTION
     Dosage: 800/200 MG 2 X DAY
     Route: 048
     Dates: start: 20061221
  2. ABACAVIR SULFATE/LAMIVUDINE [Suspect]
     Indication: HIV INFECTION
     Route: 048
     Dates: start: 20070305
  3. ABACAVIR SULFATE/LAMIVUDINE [Suspect]
     Route: 048
     Dates: start: 20061221, end: 20070305
  4. ANTICONVULSANTS [Concomitant]
     Indication: DYSKINESIA
     Dosage: NOT REPORTED
  5. AZITHROMYCIN [Concomitant]
     Indication: OPPORTUNISTIC INFECTION PROPHYLAXIS
     Route: 048
     Dates: start: 20061019, end: 20070603
  6. SULFAMATHOZAXOLE/TRIMETHOPRIME [Concomitant]
     Indication: ANTIFUNGAL PROPHYLAXIS
     Route: 048
     Dates: start: 20061019, end: 20080406
  7. PYRIMETHAMINE TAB [Concomitant]
     Indication: CEREBRAL TOXOPLASMOSIS
     Route: 048
     Dates: start: 20061025, end: 20061025
  8. PYRIMETHAMINE TAB [Concomitant]
     Route: 048
     Dates: start: 20061026, end: 20061220
  9. PYRIMETHAMINE TAB [Concomitant]
     Route: 048
     Dates: start: 20061221, end: 20080406
  10. CLINDAMYCIN HCL [Concomitant]
     Indication: CEREBRAL TOXOPLASMOSIS
     Route: 048
     Dates: start: 20061025, end: 20061220
  11. CLINDAMYCIN HCL [Concomitant]
     Route: 048
     Dates: start: 20061221, end: 20080406

REACTIONS (1)
  - FEMORAL NECK FRACTURE [None]
